FAERS Safety Report 8170617-X (Version None)
Quarter: 2012Q1

REPORT INFORMATION
  Report Type: 
  Country: None (occurrence: None)
  Receive Date: 20120104
  Receipt Date: 20111013
  Transmission Date: 20120608
  Serious: No
  Sender: FDA-Public Use
  Company Number: 2011HGS-002639

PATIENT
  Age: 63 Year
  Sex: Male
  Weight: 98.4306 kg

DRUGS (22)
  1. BUMETANIDE [Concomitant]
  2. ACTIQ [Concomitant]
  3. CATAPRES [Concomitant]
  4. CATAPRES [Concomitant]
  5. CELEBREX [Concomitant]
  6. LISINOPRIL [Concomitant]
  7. PREDNISONE TAB [Concomitant]
  8. NEURONTIN [Concomitant]
  9. METHOTREXATE [Concomitant]
  10. ACTIQ [Concomitant]
  11. REBATIO (SILDENAFIL) [Concomitant]
  12. BENLYSTA [Suspect]
     Indication: SYSTEMIC LUPUS ERYTHEMATOSUS
     Dosage: 10 MG/KG 1 IN 2 WK, INTRAVENOUS DRIP
     Route: 041
     Dates: start: 20111005
  13. PLAQUENIL [Concomitant]
  14. PREDNISONE TAB [Concomitant]
  15. NEURONTIN [Concomitant]
  16. CELEBREX [Concomitant]
  17. BUMETANIDE [Concomitant]
  18. LISINOPRIL [Concomitant]
  19. OPANA [Concomitant]
  20. PLAQUENIL [Concomitant]
  21. METHOTREXATE [Concomitant]
  22. OPANA [Concomitant]

REACTIONS (6)
  - HYPOAESTHESIA ORAL [None]
  - THROAT IRRITATION [None]
  - RESPIRATORY TRACT CONGESTION [None]
  - SEASONAL ALLERGY [None]
  - HYPERSENSITIVITY [None]
  - PHARYNGEAL OEDEMA [None]
